FAERS Safety Report 6120259-2 (Version None)
Quarter: 2009Q1

REPORT INFORMATION
  Report Type: 
  Country: None (occurrence: None)
  Receive Date: 20090312
  Receipt Date: 20090225
  Transmission Date: 20090719
  Serious: Yes (Other)
  Sender: FDA-Public Use
  Company Number: B0563113A

PATIENT
  Age: 70 Year
  Sex: Male

DRUGS (5)
  1. MELPHALAN (FORMULATION UNKNOWN) (GENERIC) (MELPHALAN) [Suspect]
     Indication: MULTIPLE MYELOMA
  2. DEXAMETHASONE [Suspect]
     Dosage: INTRAVENOUS
     Route: 042
  3. INFLIXIMAB [Concomitant]
  4. GRANULOCYTE COL.STIM.FACT [Concomitant]
  5. GRAN.MAC.COL.STIM.FACTOR [Concomitant]

REACTIONS (4)
  - CLOSTRIDIUM DIFFICILE TOXIN TEST POSITIVE [None]
  - GRAFT VERSUS HOST DISEASE [None]
  - TREATMENT FAILURE [None]
  - UPPER GASTROINTESTINAL HAEMORRHAGE [None]
